FAERS Safety Report 5024156-5 (Version None)
Quarter: 2006Q2

REPORT INFORMATION
  Report Type: 
  Country: None (occurrence: None)
  Receive Date: 20060607
  Receipt Date: 20060603
  Transmission Date: 20061013
  Serious: Yes (Other)
  Sender: FDA-Public Use
  Company Number: 218764

PATIENT
  Age: 83 Year
  Sex: Male

DRUGS (4)
  1. AVASTIN [Suspect]
     Indication: COLON CANCER
     Dosage: 450 MG, Q2W,
     Dates: start: 20050915
  2. FLUOROURACIL [Concomitant]
  3. LEUCOVORIN CALCIUM [Concomitant]
  4. CAMPTOSAR [Concomitant]

REACTIONS (1)
  - TREMOR [None]
